FAERS Safety Report 9003886 (Version 1)
Quarter: 2013Q1

REPORT INFORMATION
  Report Type: Spontaneous
  Country: GB (occurrence: GB)
  Receive Date: 20130108
  Receipt Date: 20130108
  Transmission Date: 20140127
  Serious: Yes (Disabling)
  Sender: FDA-Public Use
  Company Number: GB-TEVA-378583ISR

PATIENT
  Age: 76 Year
  Sex: Male

DRUGS (3)
  1. LEVETIRACETAM [Suspect]
     Indication: POST-TRAUMATIC EPILEPSY
     Route: 065
  2. CLOBAZAM [Concomitant]
     Indication: POST-TRAUMATIC EPILEPSY
     Route: 065
  3. SODIUM VALPROATE [Concomitant]
     Indication: POST-TRAUMATIC EPILEPSY
     Route: 065

REACTIONS (2)
  - Circadian rhythm sleep disorder [Recovered/Resolved]
  - Agitation [Recovering/Resolving]
